FAERS Safety Report 4424196-0 (Version None)
Quarter: 2004Q3

REPORT INFORMATION
  Report Type: 
  Country: None (occurrence: None)
  Receive Date: 20040812
  Receipt Date: 20040803
  Transmission Date: 20050211
  Serious: Yes (Life-Threatening)
  Sender: FDA-Public Use
  Company Number: 200417718GDDC

PATIENT
  Age: 65 Year
  Sex: Male

DRUGS (2)
  1. LOPROX [Suspect]
     Indication: ONYCHOMYCOSIS
     Dosage: DOSE: UNK
     Route: 061
     Dates: start: 20040731, end: 20040731
  2. ANTIHYPERTENSIVES [Concomitant]
     Dosage: DOSE: UNK

REACTIONS (5)
  - CHEST DISCOMFORT [None]
  - DYSPEPSIA [None]
  - DYSPNOEA [None]
  - NAUSEA [None]
  - PARAESTHESIA [None]
